FAERS Safety Report 4373893-4 (Version None)
Quarter: 2004Q1

REPORT INFORMATION
  Report Type: 
  Country: None (occurrence: None)
  Receive Date: 20040305
  Receipt Date: 20040122
  Transmission Date: 20041129
  Serious: Yes (Other)
  Sender: FDA-Public Use
  Company Number: 2004UW01132

PATIENT
  Age: 81 Year
  Sex: Female
  Weight: 55.3388 kg

DRUGS (7)
  1. CRESTOR [Suspect]
     Indication: CEREBROVASCULAR ACCIDENT PROPHYLAXIS
     Dosage: 10 MG DAILY PO
     Route: 048
  2. FOSAMAX [Concomitant]
  3. SYNTHROID [Concomitant]
  4. ASPIRIN [Concomitant]
  5. OSCAL [Concomitant]
  6. VITAMIN E [Concomitant]
  7. MULTI-VITAMINS [Concomitant]

REACTIONS (1)
  - PAIN [None]
